FAERS Safety Report 5086043-6 (Version None)
Quarter: 2006Q3

REPORT INFORMATION
  Report Type: 
  Country: None (occurrence: None)
  Receive Date: 20060817
  Receipt Date: 20060807
  Transmission Date: 20061208
  Serious: Yes (Hospitalization)
  Sender: FDA-Public Use
  Company Number: 2006097424

PATIENT
  Age: 60 Year
  Sex: Male
  Weight: 75 kg

DRUGS (10)
  1. ATORVASTATIN CALCIUM [Suspect]
     Indication: HYPERLIPIDAEMIA
     Dosage: 1DF (EVERY DAY), ORAL
     Route: 048
  2. FLUINDIONE (FLUINDIONE) [Suspect]
     Indication: ATRIAL FIBRILLATION
     Dosage: 1.25DF (EVERY DAY), ORAL
     Route: 048
     Dates: end: 20060424
  3. NEFOPAM HYDROCHLORIDE (NEFOPAM HYDROCHLORIDE) [Concomitant]
  4. BUFLOMEDIL HYDROCHLORIDE (BUFLOMEDIL HYDROCHLORIDE) [Concomitant]
  5. OMEPRAZOLE [Concomitant]
  6. BISOPROLOL FUMARATE [Concomitant]
  7. ACETAMINOPHEN W/ PROPOXYPHENE HCL [Concomitant]
  8. HYDROXYZINE HCL [Concomitant]
  9. OXAZEPAM [Concomitant]
  10. FUROSEMIDE [Concomitant]

REACTIONS (10)
  - ANAEMIA [None]
  - BLOOD PRESSURE DECREASED [None]
  - DIVERTICULUM [None]
  - DRUG INTERACTION [None]
  - FEMUR FRACTURE [None]
  - HYPERHIDROSIS [None]
  - INTERNATIONAL NORMALISED RATIO INCREASED [None]
  - PALLOR [None]
  - POLYP [None]
  - RECTAL HAEMORRHAGE [None]
